FAERS Safety Report 25493030 (Version 2)
Quarter: 2025Q4

REPORT INFORMATION
  Report Type: Spontaneous
  Country: US (occurrence: US)
  Receive Date: 20250630
  Receipt Date: 20251118
  Transmission Date: 20260117
  Serious: No
  Sender: UCB
  Company Number: US-UCBSA-2024065097

PATIENT
  Age: 5 Day

DRUGS (6)
  1. LEVETIRACETAM [Suspect]
     Active Substance: LEVETIRACETAM
     Indication: Seizure
     Dosage: LOADING DOSE OF 40 TO 60 MG/KG, FOLLOWED BY A MAINTENANCE DOSE OF 50 TO 100 MG/KG/D IN DIVIDED DOSES
  2. LEVETIRACETAM [Suspect]
     Active Substance: LEVETIRACETAM
     Indication: Seizure
  3. LACOSAMIDE [Suspect]
     Active Substance: LACOSAMIDE
     Indication: Seizure
     Dosage: UNK
  4. LACOSAMIDE [Suspect]
     Active Substance: LACOSAMIDE
     Indication: Seizure
  5. MIDAZOLAM [Suspect]
     Active Substance: MIDAZOLAM
     Indication: Seizure
     Dosage: UNK
  6. MIDAZOLAM [Suspect]
     Active Substance: MIDAZOLAM
     Indication: Seizure

REACTIONS (2)
  - Multiple-drug resistance [Unknown]
  - Off label use [Unknown]
